FAERS Safety Report 21121651 (Version 1)
Quarter: 2022Q3

REPORT INFORMATION
  Report Type: Spontaneous
  Country: ES (occurrence: ES)
  Receive Date: 20220722
  Receipt Date: 20220722
  Transmission Date: 20221027
  Serious: Yes (Disabling)
  Sender: FDA-Public Use
  Company Number: ES-TEVA-2022-ES-2056537

PATIENT
  Age: 95 Year
  Sex: Male

DRUGS (3)
  1. RISPERIDONE [Suspect]
     Active Substance: RISPERIDONE
     Indication: Dementia
     Dosage: 4 DOSAGE FORMS DAILY;
     Route: 048
     Dates: start: 202207, end: 20220713
  2. RISPERIDONE [Suspect]
     Active Substance: RISPERIDONE
     Route: 048
     Dates: start: 20220713, end: 20220714
  3. RISPERIDONE [Suspect]
     Active Substance: RISPERIDONE
     Dosage: 1 DOSAGE FORMS DAILY;
     Route: 048
     Dates: start: 20220714

REACTIONS (4)
  - Movement disorder [Recovered/Resolved]
  - Feeding disorder [Recovered/Resolved]
  - Speech disorder [Recovered/Resolved]
  - Overdose [Recovered/Resolved]

NARRATIVE: CASE EVENT DATE: 20220701
